FAERS Safety Report 7578360-2 (Version None)
Quarter: 2011Q2

REPORT INFORMATION
  Report Type: 
  Country: None (occurrence: None)
  Receive Date: 20110628
  Receipt Date: 20110628
  Transmission Date: 20111010
  Serious: Yes (Death)
  Sender: FDA-Public Use
  Company Number: US-ROXANE LABORATORIES, INC.-2011-RO-00193RO

PATIENT
  Sex: Male
  Weight: 83 kg

DRUGS (2)
  1. MORPHINE [Suspect]
     Indication: ABDOMINAL PAIN UPPER
  2. FENTANYL [Suspect]
     Indication: ABDOMINAL PAIN UPPER

REACTIONS (1)
  - DEATH [None]
